FAERS Safety Report 5592723-6 (Version None)
Quarter: 2007Q4

REPORT INFORMATION
  Report Type: 
  Country: None (occurrence: None)
  Receive Date: 20071217
  Receipt Date: 20071011
  Transmission Date: 20080405
  Serious: No
  Sender: FDA-Public Use
  Company Number: BDI-010384

PATIENT
  Age: 11 Year
  Sex: Female

DRUGS (2)
  1. MULTIHANCE [Suspect]
     Indication: NUCLEAR MAGNETIC RESONANCE IMAGING
     Dosage: SY
     Dates: start: 20071011, end: 20071011
  2. DIPRIVAN [Concomitant]

REACTIONS (1)
  - ANAPHYLACTIC REACTION [None]
